FAERS Safety Report 6025545-2 (Version None)
Quarter: 2008Q4

REPORT INFORMATION
  Report Type: 
  Country: None (occurrence: None)
  Receive Date: 20081224
  Receipt Date: 20081216
  Transmission Date: 20090506
  Serious: Yes (Life-Threatening)
  Sender: FDA-Public Use
  Company Number: 2008US003450

PATIENT
  Age: 14 Year
  Sex: Male

DRUGS (4)
  1. AMBISOME [Suspect]
     Indication: PNEUMONIA
     Dosage: 200 MG, UID/QD, IV DRIP
     Route: 041
     Dates: start: 20080901, end: 20081128
  2. GLEEVEC [Suspect]
     Indication: DRUG USE FOR UNKNOWN INDICATION
     Dosage: /D, ORAL
     Route: 048
     Dates: start: 20081001, end: 20081128
  3. CYTARABINE [Suspect]
     Indication: DRUG USE FOR UNKNOWN INDICATION
     Dosage: /D
     Dates: start: 20081125, end: 20081127
  4. VFEND [Concomitant]

REACTIONS (1)
  - PANCREATITIS [None]
